FAERS Safety Report 19487864 (Version 1)
Quarter: 2021Q3

REPORT INFORMATION
  Report Type: Spontaneous
  Country: PL (occurrence: PL)
  Receive Date: 20210702
  Receipt Date: 20210702
  Transmission Date: 20211014
  Serious: Yes (Other)
  Sender: FDA-Public Use
  Company Number: PL-MYLANLABS-2021M1039046

PATIENT
  Age: 60 Year
  Sex: Male

DRUGS (2)
  1. METHOTREXATE. [Suspect]
     Active Substance: METHOTREXATE
     Indication: EOSINOPHILIC FASCIITIS
     Dosage: 15 MILLIGRAM, QW (15 MG WEEKLY)
  2. METHYLPREDNISOLONE. [Suspect]
     Active Substance: METHYLPREDNISOLONE
     Indication: EOSINOPHILIC FASCIITIS
     Dosage: (48 MG/D (WITH DOSE REDUCTION OF 4 MG WEEKLY UNTIL 16 MG))

REACTIONS (3)
  - Necrotising fasciitis [Recovering/Resolving]
  - Septic shock [Recovering/Resolving]
  - Product use in unapproved indication [Unknown]
